FAERS Safety Report 23611144 (Version 1)
Quarter: 2024Q1

REPORT INFORMATION
  Report Type: Spontaneous
  Country: CN (occurrence: CN)
  Receive Date: 20240308
  Receipt Date: 20240308
  Transmission Date: 20240410
  Serious: Yes (Hospitalization, Other)
  Sender: FDA-Public Use
  Company Number: None

PATIENT
  Age: 52 Year
  Sex: Male
  Weight: 55 kg

DRUGS (15)
  1. CYCLOPHOSPHAMIDE [Suspect]
     Active Substance: CYCLOPHOSPHAMIDE
     Indication: Diffuse large B-cell lymphoma stage II
     Dosage: 1.2 G, ONE TIME IN ONE DAY, DILUTED WITH 40 ML OF 0.9% SODIUM CHLORIDE, D2
     Route: 042
     Dates: start: 20240111, end: 20240111
  2. CYCLOPHOSPHAMIDE [Suspect]
     Active Substance: CYCLOPHOSPHAMIDE
     Indication: Diffuse large B-cell lymphoma
  3. SODIUM CHLORIDE [Suspect]
     Active Substance: SODIUM CHLORIDE
     Indication: Medication dilution
     Dosage: 0.9% 600 ML, ONE TIME IN ONE DAY, USED TO DILUTE RITUXIMAB 600 MG, D1
     Route: 041
     Dates: start: 20240110, end: 20240110
  4. SODIUM CHLORIDE [Suspect]
     Active Substance: SODIUM CHLORIDE
     Dosage: 0.9% 40 ML, ONE TIME IN ONE DAY, USED TO DILUTE CYCLOPHOSPHAMIDE 1.2G, D2
     Route: 042
     Dates: start: 20240111, end: 20240111
  5. SODIUM CHLORIDE [Suspect]
     Active Substance: SODIUM CHLORIDE
     Dosage: 0.9% 40 ML, ONE TIME IN ONE DAY, USED TO DILUTE DOXORUBICIN HYDROCHLORIDE 70 MG, D2
     Route: 042
     Dates: start: 20240111, end: 20240111
  6. SODIUM CHLORIDE [Suspect]
     Active Substance: SODIUM CHLORIDE
     Dosage: 0.9% 40 ML, ONE TIME IN ONE DAY, USED TO DILUTE VINCRISTINE SULFATE 2 MG, D2
     Route: 042
     Dates: start: 20240111, end: 20240111
  7. DOXORUBICIN HYDROCHLORIDE [Suspect]
     Active Substance: DOXORUBICIN HYDROCHLORIDE
     Indication: Diffuse large B-cell lymphoma
     Dosage: 70 MG, ONE TIME IN ONE DAY, DILUTED WITH 40 ML OF 0.9% SODIUM CHLORIDE, D2
     Route: 042
     Dates: start: 20240111, end: 20240111
  8. DOXORUBICIN HYDROCHLORIDE [Suspect]
     Active Substance: DOXORUBICIN HYDROCHLORIDE
     Indication: Diffuse large B-cell lymphoma stage II
  9. VINCRISTINE SULFATE [Suspect]
     Active Substance: VINCRISTINE SULFATE
     Indication: Diffuse large B-cell lymphoma stage II
     Dosage: 2 MG, ONE TIME IN ONE DAY, DILUTED WITH 40 ML OF 0.9% SODIUM CHLORIDE, D2
     Route: 042
     Dates: start: 20240111, end: 20240111
  10. VINCRISTINE SULFATE [Suspect]
     Active Substance: VINCRISTINE SULFATE
     Indication: Diffuse large B-cell lymphoma
  11. RITUXIMAB [Suspect]
     Active Substance: RITUXIMAB
     Indication: Diffuse large B-cell lymphoma stage II
     Dosage: 10 ML, ONE TIME IN ONE DAY
     Route: 042
     Dates: start: 20240110, end: 20240110
  12. RITUXIMAB [Suspect]
     Active Substance: RITUXIMAB
     Indication: Diffuse large B-cell lymphoma
     Dosage: 50 ML, ONE TIME IN ONE DAY
     Route: 042
     Dates: start: 20240110, end: 20240110
  13. RITUXIMAB [Suspect]
     Active Substance: RITUXIMAB
     Dosage: 600 MG, ONE TIME IN ONE DAY, DILUTED WITH 0.9% SODIUM CHLORIDE 600ML, D1
     Route: 041
     Dates: start: 20240110, end: 20240110
  14. PREDNISOLONE ACETATE [Suspect]
     Active Substance: PREDNISOLONE ACETATE
     Indication: Diffuse large B-cell lymphoma stage II
     Dosage: 100 MG, ONE TIME IN ONE DAY, D2-6
     Route: 048
     Dates: start: 20240111, end: 20240115
  15. PREDNISOLONE ACETATE [Suspect]
     Active Substance: PREDNISOLONE ACETATE
     Indication: Diffuse large B-cell lymphoma

REACTIONS (1)
  - Myelosuppression [Recovered/Resolved]

NARRATIVE: CASE EVENT DATE: 20240131
